FAERS Safety Report 9700686 (Version 2)
Quarter: 2013Q4

REPORT INFORMATION
  Report Type: Spontaneous
  Country: DE (occurrence: None)
  Receive Date: 20131119
  Receipt Date: 20131129
  Transmission Date: 20140711
  Serious: Yes (Other)
  Sender: FDA-Public Use
  Company Number: AUR-APL-2013-09461

PATIENT
  Age: 70 Year
  Sex: Female

DRUGS (1)
  1. AMLODIPINE [Suspect]
     Indication: PRODUCT USED FOR UNKNOWN INDICATION

REACTIONS (12)
  - Dystonia [None]
  - Akathisia [None]
  - Depression [None]
  - Anxiety [None]
  - Neck pain [None]
  - Dyspnoea [None]
  - Dysphonia [None]
  - Dysphagia [None]
  - Strabismus [None]
  - Blepharospasm [None]
  - Hypokinesia [None]
  - Torticollis [None]
